FAERS Safety Report 23989621 (Version 4)
Quarter: 2024Q3

REPORT INFORMATION
  Report Type: Spontaneous
  Country: US (occurrence: US)
  Receive Date: 20240619
  Receipt Date: 20240731
  Transmission Date: 20241017
  Serious: No
  Sender: BAYER
  Company Number: US-BAYER-2024A085699

PATIENT
  Age: 58 Year
  Sex: Female

DRUGS (1)
  1. ESTRADIOL [Suspect]
     Active Substance: ESTRADIOL
     Dosage: 0.05MG/1D 4TTSM
     Route: 062
     Dates: start: 202406

REACTIONS (8)
  - Malaise [Recovering/Resolving]
  - Migraine [Recovering/Resolving]
  - Product adhesion issue [None]
  - Product contamination physical [None]
  - Fatigue [None]
  - Hot flush [None]
  - Asthenia [None]
  - Alopecia [None]

NARRATIVE: CASE EVENT DATE: 20240101
